FAERS Safety Report 14674994 (Version 1)
Quarter: 2018Q1

REPORT INFORMATION
  Report Type: Spontaneous
  Country: CA (occurrence: CA)
  Receive Date: 20180323
  Receipt Date: 20180323
  Transmission Date: 20180509
  Serious: Yes (Other)
  Sender: FDA-Public Use
  Company Number: CA-BAYER-2018-051832

PATIENT
  Sex: Female

DRUGS (1)
  1. MIRENA [Suspect]
     Active Substance: LEVONORGESTREL
     Dosage: 20 MCG/24HR, CONT
     Route: 015

REACTIONS (12)
  - Palpitations [Unknown]
  - Night sweats [Unknown]
  - Thyroid disorder [Unknown]
  - Weight increased [Unknown]
  - Anxiety [Unknown]
  - Irritability [Unknown]
  - Limb discomfort [Unknown]
  - Mood swings [Unknown]
  - Sleep disorder [Unknown]
  - Alopecia [Unknown]
  - Depression [Unknown]
  - Disturbance in attention [Unknown]
